FAERS Safety Report 7631724-0 (Version None)
Quarter: 2011Q3

REPORT INFORMATION
  Report Type: 
  Country: None (occurrence: None)
  Receive Date: 20110725
  Receipt Date: 20110712
  Transmission Date: 20111222
  Serious: Yes (Death)
  Sender: FDA-Public Use
  Company Number: DE-UCBSA-036616

PATIENT
  Sex: Female

DRUGS (21)
  1. LYRICA [Concomitant]
     Indication: STATUS EPILEPTICUS
     Route: 048
     Dates: start: 20110515, end: 20110517
  2. MG LONGORAL [Concomitant]
     Indication: MAGNESIUM DEFICIENCY
     Route: 048
     Dates: start: 20110516, end: 20110517
  3. PULMOZYME [Concomitant]
     Dosage: INHALATIVE
     Dates: start: 20110510, end: 20110517
  4. CLINDAMYCIN HCL [Concomitant]
     Indication: INFECTION
     Route: 042
     Dates: start: 20110516, end: 20110517
  5. TROBALT [Concomitant]
     Indication: STATUS EPILEPTICUS
     Route: 048
     Dates: start: 20110516, end: 20110517
  6. CALCIUM FORTE [Concomitant]
     Route: 048
     Dates: start: 20110512, end: 20110517
  7. KONAKION [Concomitant]
     Indication: DISSEMINATED INTRAVASCULAR COAGULATION
     Route: 042
     Dates: start: 20110516, end: 20110517
  8. VALPROIC ACID [Concomitant]
     Indication: STATUS EPILEPTICUS
     Dosage: ONCE-ONLY
     Route: 042
     Dates: start: 20110517, end: 20110517
  9. SUFENTANIL CITRATE [Concomitant]
     Indication: SEDATION
     Dates: start: 20110513, end: 20110517
  10. VIMPAT [Suspect]
     Indication: STATUS EPILEPTICUS
     Route: 042
     Dates: start: 20110512, end: 20110517
  11. LORAZEPAM [Concomitant]
     Indication: EPILEPSY
     Route: 042
     Dates: start: 20110516, end: 20110517
  12. TORSEMIDE [Concomitant]
     Indication: RENAL DISORDER
     Route: 042
     Dates: start: 20110516, end: 20110517
  13. ARIXTRA [Concomitant]
     Indication: HEPARIN-INDUCED THROMBOCYTOPENIA
     Route: 058
     Dates: start: 20110511, end: 20110517
  14. PANTOPRAZOLE [Concomitant]
     Indication: GASTRIC DISORDER
     Route: 042
     Dates: start: 20110507, end: 20110517
  15. LEVOTHYROXINE SODIUM [Concomitant]
     Indication: TRI-IODOTHYRONINE DECREASED
     Route: 048
     Dates: start: 20110507, end: 20110517
  16. GLUCOSE [Concomitant]
     Indication: PARENTERAL NUTRITION
     Route: 042
     Dates: start: 20110517, end: 20110517
  17. KETANEST [Concomitant]
     Route: 042
     Dates: start: 20110516, end: 20110517
  18. PREDNISOLONE SODIUM SUCCINATE INJ [Concomitant]
     Indication: INFLAMMATION
     Route: 042
     Dates: start: 20110516, end: 20110517
  19. ANTIEPILEPTIC [Concomitant]
  20. LEVOTHYROXINE SODIUM [Concomitant]
     Indication: THYROXINE DECREASED
     Route: 048
     Dates: start: 20110507, end: 20110517
  21. NOREPINEPHRINE BITARTRATE [Concomitant]
     Dates: start: 20110517, end: 20110517

REACTIONS (2)
  - STATUS EPILEPTICUS [None]
  - RHABDOMYOLYSIS [None]
